FAERS Safety Report 11044148 (Version 4)
Quarter: 2015Q2

REPORT INFORMATION
  Report Type: Spontaneous
  Country: US (occurrence: US)
  Receive Date: 20150417
  Receipt Date: 20150616
  Transmission Date: 20150821
  Serious: No
  Sender: FDA-Public Use
  Company Number: US-PFIZER INC-2015127172

PATIENT
  Age: 57 Year
  Sex: Female
  Weight: 66 kg

DRUGS (13)
  1. LEVOXYL [Suspect]
     Active Substance: LEVOTHYROXINE SODIUM
     Indication: THYROID HORMONE REPLACEMENT THERAPY
     Dosage: UNK
     Route: 048
     Dates: start: 2010
  2. LEVOXYL [Suspect]
     Active Substance: LEVOTHYROXINE SODIUM
     Dosage: 100 ?G, 1X/DAY
     Route: 048
     Dates: start: 201505
  3. LEVOXYL [Suspect]
     Active Substance: LEVOTHYROXINE SODIUM
     Indication: HYPOTHYROIDISM
     Dosage: 100 ?G, 7 TIMES A WEEK
     Route: 048
     Dates: start: 2013
  4. LEVOXYL [Suspect]
     Active Substance: LEVOTHYROXINE SODIUM
     Dosage: 88 ?G, WEEKLY
     Route: 048
     Dates: start: 20140314
  5. LEVOXYL [Suspect]
     Active Substance: LEVOTHYROXINE SODIUM
     Dosage: 100 ?G, 5X/WEEK
     Route: 048
     Dates: start: 201404
  6. LEVOXYL [Suspect]
     Active Substance: LEVOTHYROXINE SODIUM
     Dosage: 88 ?G, UNK
     Route: 048
     Dates: start: 20140311
  7. LEVOXYL [Suspect]
     Active Substance: LEVOTHYROXINE SODIUM
     Dosage: 100 ?G, UNK
     Route: 048
     Dates: start: 20140311
  8. LEVOXYL [Suspect]
     Active Substance: LEVOTHYROXINE SODIUM
     Dosage: 88 ?G, 2X/WEEK
     Route: 048
     Dates: start: 201404
  9. LEVOXYL [Suspect]
     Active Substance: LEVOTHYROXINE SODIUM
     Indication: PRIMARY HYPOTHYROIDISM
     Dosage: 88 ?G, WEEKLY
     Route: 048
     Dates: start: 2013
  10. VITAMIN D [Concomitant]
     Active Substance: CHOLECALCIFEROL
     Indication: OSTEOPENIA
     Dosage: 1000 IU, DAILY
     Dates: start: 2013
  11. LEVOXYL [Suspect]
     Active Substance: LEVOTHYROXINE SODIUM
     Indication: THYROID CANCER
     Dosage: 600 ?G, WEEKLY (SIX 100MCG A WEEK)
     Route: 048
     Dates: start: 2013
  12. LEVOXYL [Suspect]
     Active Substance: LEVOTHYROXINE SODIUM
     Dosage: 600 ?G, WEEKLY (100 MCG X 6 WEEKLY)
     Route: 048
     Dates: start: 20150424
  13. CALCIUM [Concomitant]
     Active Substance: CALCIUM
     Indication: OSTEOPENIA
     Dosage: 1200 MG, DAILY
     Dates: start: 2010

REACTIONS (7)
  - Weight decreased [Unknown]
  - Drug effect decreased [Not Recovered/Not Resolved]
  - Malabsorption [Unknown]
  - Labelled drug-drug interaction medication error [Not Recovered/Not Resolved]
  - Product quality issue [Not Recovered/Not Resolved]
  - Feeling abnormal [Not Recovered/Not Resolved]
  - Blood thyroid stimulating hormone decreased [Unknown]

NARRATIVE: CASE EVENT DATE: 2014
